FAERS Safety Report 9606901 (Version 2)
Quarter: 2013Q4

REPORT INFORMATION
  Report Type: Spontaneous
  Country: US (occurrence: US)
  Receive Date: 20131008
  Receipt Date: 20131008
  Transmission Date: 20140711
  Serious: No
  Sender: FDA-Public Use
  Company Number: US-AMGEN-USASP2013056940

PATIENT
  Age: 80 Year
  Sex: Female
  Weight: 60.77 kg

DRUGS (1)
  1. PROLIA [Suspect]
     Indication: OSTEOPOROSIS POSTMENOPAUSAL
     Dosage: 60 MG, Q6MO
     Route: 058
     Dates: start: 20111230

REACTIONS (3)
  - General physical health deterioration [Unknown]
  - Gastrointestinal motility disorder [Unknown]
  - Malaise [Recovered/Resolved]
